FAERS Safety Report 24211078 (Version 2)
Quarter: 2024Q3

REPORT INFORMATION
  Report Type: Spontaneous
  Country: US (occurrence: US)
  Receive Date: 20240814
  Receipt Date: 20240903
  Transmission Date: 20241016
  Serious: No
  Sender: BAYER
  Company Number: US-BAYER-2024A116398

PATIENT
  Sex: Female

DRUGS (1)
  1. BETASERON [Suspect]
     Active Substance: INTERFERON BETA-1B

REACTIONS (11)
  - Pain [Recovering/Resolving]
  - Headache [Recovering/Resolving]
  - Gait disturbance [Recovering/Resolving]
  - Pyrexia [Recovering/Resolving]
  - Chills [Recovering/Resolving]
  - Tremor [Recovering/Resolving]
  - Muscle spasticity [Recovering/Resolving]
  - Pain in extremity [Recovered/Resolved with Sequelae]
  - Arthralgia [Recovered/Resolved with Sequelae]
  - Back pain [Recovered/Resolved with Sequelae]
  - Discomfort [Recovered/Resolved with Sequelae]
